FAERS Safety Report 11524085 (Version 1)
Quarter: 2015Q3

REPORT INFORMATION
  Report Type: Spontaneous
  Country: US (occurrence: US)
  Receive Date: 20150903
  Receipt Date: 20150903
  Transmission Date: 20151125
  Serious: No
  Sender: FDA-Public Use
  Company Number: US-ELI_LILLY_AND_COMPANY-US201305000586

PATIENT
  Age: 50 Year
  Sex: Female

DRUGS (2)
  1. NEXIUM [Concomitant]
     Active Substance: ESOMEPRAZOLE MAGNESIUM
     Dosage: UNK (TWO, NO DOSAGE OR UNITS), QD
     Route: 065
  2. CYMBALTA [Suspect]
     Active Substance: DULOXETINE HYDROCHLORIDE
     Indication: DEPRESSION
     Dosage: 30 MG, QD
     Route: 065
     Dates: start: 20130425, end: 20130425

REACTIONS (11)
  - Erythema [Unknown]
  - Dysuria [Unknown]
  - Urine odour abnormal [Unknown]
  - Abdominal pain [Unknown]
  - Chromaturia [Unknown]
  - Throat tightness [Unknown]
  - Bile culture [Unknown]
  - Palpitations [Unknown]
  - Eructation [Not Recovered/Not Resolved]
  - Blister [Unknown]
  - Hyperhidrosis [Unknown]

NARRATIVE: CASE EVENT DATE: 20130425
